FAERS Safety Report 22224889 (Version 3)
Quarter: 2023Q2

REPORT INFORMATION
  Report Type: Report from Study
  Country: PT (occurrence: None)
  Receive Date: 20230418
  Receipt Date: 20230515
  Transmission Date: 20230721
  Serious: Yes (Hospitalization)
  Sender: FDA-Public Use
  Company Number: PT-Merck Healthcare KGaA-9396206

PATIENT
  Sex: Male

DRUGS (4)
  1. MAVENCLAD [Suspect]
     Active Substance: CLADRIBINE
     Indication: Multiple sclerosis
     Dosage: YEAR ONE CYCLE ONE THERAPY AT A DOSAGE OF TWO TABLETS ON DAYS 1 TO 3, ONE TABLET ON DAYS 4 AND 5
     Route: 048
     Dates: start: 20200928
  2. MAVENCLAD [Suspect]
     Active Substance: CLADRIBINE
     Dosage: YEAR ONE CYCLE TWO THERAPY AT A DOSAGE OF TWO TABLETS ON DAY 1 AND 2, THEN ONE TABLET ON DAYS 3 TO 5
     Route: 048
     Dates: start: 20201026
  3. MAVENCLAD [Suspect]
     Active Substance: CLADRIBINE
     Dosage: YEAR TWO CYCLE ONE THERAPY AT A DOSE OF 2 TABLETS ON DAYS 1 TO 3 AND 1 TABLET ON DAYS 4 AND 5
     Route: 048
  4. MAVENCLAD [Suspect]
     Active Substance: CLADRIBINE
     Dosage: YEAR TWO CYCLE TWO THERAPY
     Route: 048
     Dates: end: 20211112

REACTIONS (2)
  - Respiratory tract infection [Recovering/Resolving]
  - Aphasia [Recovering/Resolving]
